FAERS Safety Report 21131201 (Version 1)
Quarter: 2022Q3

REPORT INFORMATION
  Report Type: Spontaneous
  Country: US (occurrence: US)
  Receive Date: 20220726
  Receipt Date: 20220726
  Transmission Date: 20221027
  Serious: No
  Sender: FDA-Public Use
  Company Number: US-GSKCCFUS-Case-01443180_AE-82808

PATIENT
  Age: 79 Year
  Sex: Female

DRUGS (1)
  1. ADVAIR DISKUS [Suspect]
     Active Substance: FLUTICASONE PROPIONATE\SALMETEROL XINAFOATE
     Indication: Restrictive pulmonary disease
     Dosage: 1 PUFF(S), BID (100/50)
     Route: 055
     Dates: start: 202207

REACTIONS (2)
  - Productive cough [Unknown]
  - Off label use [Unknown]

NARRATIVE: CASE EVENT DATE: 20220701
